FAERS Safety Report 5563366-5 (Version None)
Quarter: 2007Q4

REPORT INFORMATION
  Report Type: 
  Country: None (occurrence: None)
  Receive Date: 20071217
  Receipt Date: 20070423
  Transmission Date: 20080405
  Serious: No
  Sender: FDA-Public Use
  Company Number: US-ASTRAZENECA-2007UW07922

PATIENT
  Age: 78 Year
  Sex: Male
  Weight: 63 kg

DRUGS (6)
  1. CRESTOR [Suspect]
     Indication: BLOOD CHOLESTEROL INCREASED
     Route: 048
     Dates: start: 20070301, end: 20070401
  2. CRESTOR [Suspect]
     Route: 048
     Dates: start: 20070401, end: 20070401
  3. PLAVIX [Concomitant]
  4. RYTHMOL [Concomitant]
  5. TOPROL-XL [Concomitant]
  6. NITROGLYCERIN [Concomitant]

REACTIONS (2)
  - GROIN PAIN [None]
  - PAIN IN EXTREMITY [None]
